FAERS Safety Report 11875042 (Version 1)
Quarter: 2015Q4

REPORT INFORMATION
  Report Type: Spontaneous
  Country: US (occurrence: None)
  Receive Date: 20151228
  Receipt Date: 20151228
  Transmission Date: 20160305
  Serious: Yes (Life-Threatening)
  Sender: FDA-Public Use
  Company Number: None

PATIENT
  Age: 36 Year
  Sex: Female
  Weight: 74.84 kg

DRUGS (5)
  1. SERTRALINE [Concomitant]
     Active Substance: SERTRALINE HYDROCHLORIDE
  2. MULTI-VITAMIN [Concomitant]
     Active Substance: .ALPHA.-TOCOPHEROL ACETATE, DL-\ASCORBIC ACID\CYANOCOBALAMIN\FLUORIDE ION\FOLIC ACID\NIACIN\PYRIDOXINE\RIBOFLAVIN\THIAMINE\VITAMIN A\VITAMIN D
  3. LATISSE [Concomitant]
     Active Substance: BIMATOPROST
  4. DOXYCYCLINE HYCLATE 20 MG LANNETT CO. [Suspect]
     Active Substance: DOXYCYCLINE HYCLATE
     Indication: ROSACEA
     Dosage: 2 PILLS
     Route: 048
     Dates: start: 20151012, end: 20151216
  5. MONTELUKAST [Concomitant]
     Active Substance: MONTELUKAST SODIUM

REACTIONS (9)
  - Impaired work ability [None]
  - Abnormal behaviour [None]
  - Feeling abnormal [None]
  - Loss of employment [None]
  - Depression [None]
  - Crying [None]
  - Mental disorder [None]
  - Suicidal ideation [None]
  - Screaming [None]

NARRATIVE: CASE EVENT DATE: 20151214
